FAERS Safety Report 10527699 (Version 3)
Quarter: 2014Q4

REPORT INFORMATION
  Report Type: Spontaneous
  Country: DE (occurrence: DE)
  Receive Date: 20141020
  Receipt Date: 20141114
  Transmission Date: 20150528
  Serious: Yes (Hospitalization)
  Sender: FDA-Public Use
  Company Number: DE-AMGEN-DEUSP2014080467

PATIENT
  Age: 73 Year
  Sex: Male
  Weight: 95 kg

DRUGS (5)
  1. NEULASTA [Suspect]
     Active Substance: PEGFILGRASTIM
     Dosage: UNK
     Route: 058
     Dates: start: 20140805
  2. 5 FU [Concomitant]
     Active Substance: FLUOROURACIL
     Dosage: 990, D1-5
     Route: 040
     Dates: start: 20140818, end: 20140822
  3. NEULASTA [Suspect]
     Active Substance: PEGFILGRASTIM
     Dosage: 6 UNK, UNK
     Route: 058
     Dates: start: 20140829
  4. NEULASTA [Suspect]
     Active Substance: PEGFILGRASTIM
     Indication: RECTAL CANCER
     Dosage: 6 UNK, UNK
     Route: 058
     Dates: start: 20140805
  5. 5 FU [Concomitant]
     Active Substance: FLUOROURACIL
     Indication: RECTAL CANCER
     Dosage: 990, D1-5
     Route: 040
     Dates: start: 20140714, end: 20140718

REACTIONS (2)
  - Febrile neutropenia [Recovered/Resolved]
  - Drug ineffective [Unknown]

NARRATIVE: CASE EVENT DATE: 20140805
